FAERS Safety Report 4320266-6 (Version None)
Quarter: 2004Q1

REPORT INFORMATION
  Report Type: 
  Country: None (occurrence: None)
  Receive Date: 20040317
  Receipt Date: 20040308
  Transmission Date: 20041129
  Serious: Yes (Hospitalization, Other)
  Sender: FDA-Public Use
  Company Number: ES-JNJFOC-20040300686

PATIENT
  Age: 54 Year
  Sex: Male

DRUGS (5)
  1. REMICADE [Suspect]
     Indication: PSORIATIC ARTHROPATHY
     Dosage: 3 MG/KG, INTRAVENOUS
     Route: 042
     Dates: start: 20020301, end: 20020807
  2. PLACEBO (PLACEBO) LYOPHILIZED POWDER [Suspect]
     Indication: PSORIATIC ARTHROPATHY
     Dosage: INTRAVENOUS
     Route: 042
     Dates: start: 20020301, end: 20020807
  3. METHOTREXATE [Concomitant]
  4. INDOMETHACIN [Concomitant]
  5. FOLIC ACID [Concomitant]

REACTIONS (3)
  - CHOLECYSTITIS [None]
  - EMPYEMA [None]
  - SEPSIS [None]
